FAERS Safety Report 12014396 (Version 2)
Quarter: 2016Q1

REPORT INFORMATION
  Report Type: Spontaneous
  Country: US (occurrence: US)
  Receive Date: 20160205
  Receipt Date: 20160311
  Transmission Date: 20160526
  Serious: Yes (Hospitalization)
  Sender: FDA-Public Use
  Company Number: US-BAYER-2016-014275

PATIENT
  Age: 72 Year
  Sex: Male

DRUGS (3)
  1. XARELTO [Suspect]
     Active Substance: RIVAROXABAN
     Indication: ATRIAL FIBRILLATION
  2. XARELTO [Suspect]
     Active Substance: RIVAROXABAN
     Indication: CEREBROVASCULAR ACCIDENT PROPHYLAXIS
     Dosage: 15 MG, UNK
     Route: 048
     Dates: start: 20150202, end: 20150219
  3. ALEVE [Suspect]
     Active Substance: NAPROXEN SODIUM
     Indication: PRODUCT USED FOR UNKNOWN INDICATION
     Dosage: 220 MG, UNK
     Route: 048

REACTIONS (2)
  - Gastrointestinal haemorrhage [Recovering/Resolving]
  - Acute kidney injury [Unknown]

NARRATIVE: CASE EVENT DATE: 20150217
